APPROVED DRUG PRODUCT: TRIMETHOPRIM
Active Ingredient: TRIMETHOPRIM
Strength: 100MG
Dosage Form/Route: TABLET;ORAL
Application: N018679 | Product #001 | TE Code: AB
Applicant: DR REDDYS LABORATORIES SA
Approved: Jul 30, 1982 | RLD: Yes | RS: Yes | Type: RX